FAERS Safety Report 8496718-4 (Version None)
Quarter: 2012Q3

REPORT INFORMATION
  Report Type: 
  Country: None (occurrence: None)
  Receive Date: 20120709
  Receipt Date: 20120703
  Transmission Date: 20120928
  Serious: Yes (Hospitalization, Other)
  Sender: FDA-Public Use
  Company Number: DE-AMGEN-DEUSP2012023715

PATIENT
  Sex: Male

DRUGS (12)
  1. DOXORUBICIN HCL [Suspect]
     Indication: B-CELL LYMPHOMA
     Dosage: 100 MG, QD
     Route: 042
     Dates: start: 20120403, end: 20120403
  2. VINCRISTINE [Suspect]
     Indication: B-CELL LYMPHOMA
     Dosage: 2 MG, QD
     Route: 042
     Dates: start: 20120403, end: 20120403
  3. NOVALGIN                           /00169801/ [Concomitant]
     Indication: PAIN
     Dosage: 500 MG, QID
     Route: 048
  4. NEULASTA [Suspect]
     Indication: B-CELL LYMPHOMA
     Dosage: 6 MG, UNK
     Route: 058
     Dates: start: 20120406, end: 20120406
  5. MORPHINE SULFATE [Concomitant]
     Indication: PAIN
     Dosage: 30 MG, BID
     Route: 048
  6. PANTOPRAZOLE [Concomitant]
     Indication: PROPHYLAXIS AGAINST GASTROINTESTINAL ULCER
     Dosage: 40 MG, QD
     Route: 048
  7. RITUXIMAB [Suspect]
     Indication: B-CELL LYMPHOMA
     Dosage: 750 MG, QD
     Route: 042
     Dates: start: 20120402, end: 20120402
  8. DIPYRONE TAB [Concomitant]
     Indication: PAIN
     Dosage: 500 MG, QID
     Route: 048
  9. CYCLOPHOSPHAMIDE [Suspect]
     Indication: B-CELL LYMPHOMA
     Dosage: 1500 MG, QD
     Route: 042
     Dates: start: 20120403, end: 20120403
  10. METOCLOPRAMIDE [Concomitant]
     Indication: VOMITING
     Dosage: 20 GTT, TID
     Route: 048
  11. PREDNISOLONE [Suspect]
     Indication: B-CELL LYMPHOMA
     Dosage: 500 MG, QD
     Route: 048
     Dates: start: 20120402, end: 20120406
  12. ACYCLOVIR [Concomitant]
     Indication: PRODUCT USED FOR UNKNOWN INDICATION

REACTIONS (3)
  - FEBRILE NEUTROPENIA [None]
  - ANAEMIA [None]
  - PLATELET COUNT DECREASED [None]
